FAERS Safety Report 25024096 (Version 2)
Quarter: 2025Q1

REPORT INFORMATION
  Report Type: Report from Study
  Country: CN (occurrence: CN)
  Receive Date: 20250228
  Receipt Date: 20250303
  Transmission Date: 20250409
  Serious: Yes (Hospitalization, Other)
  Sender: PFIZER
  Company Number: CN-TAKEDA-2023TUS089742

PATIENT
  Age: 63 Year
  Sex: Female
  Weight: 60.5 kg

DRUGS (14)
  1. BRENTUXIMAB VEDOTIN [Suspect]
     Active Substance: BRENTUXIMAB VEDOTIN
     Indication: Anaplastic large cell lymphoma T- and null-cell types
     Route: 041
     Dates: start: 20230531
  2. IFOSFAMIDE [Suspect]
     Active Substance: IFOSFAMIDE
     Indication: Anaplastic large cell lymphoma T- and null-cell types
     Dosage: 2400 MG, 1X/DAY
     Route: 042
     Dates: start: 20230531, end: 20230603
  3. IFOSFAMIDE [Suspect]
     Active Substance: IFOSFAMIDE
     Dosage: 1800 MG, 1X/DAY
     Route: 042
     Dates: start: 20230711
  4. ETOPOSIDE [Suspect]
     Active Substance: ETOPOSIDE
     Indication: Anaplastic large cell lymphoma T- and null-cell types
     Dosage: 0.16 GRAM, QD
     Route: 042
     Dates: start: 20230531, end: 20230603
  5. ETOPOSIDE [Suspect]
     Active Substance: ETOPOSIDE
     Dosage: 0.12 G, 1X/DAY
     Route: 042
     Dates: start: 20230711
  6. CARBOPLATIN [Suspect]
     Active Substance: CARBOPLATIN
     Indication: Anaplastic large cell lymphoma T- and null-cell types
     Dosage: 545 MILLIGRAM, 1/WEEK
     Route: 042
     Dates: start: 20230531, end: 20230603
  7. CARBOPLATIN [Suspect]
     Active Substance: CARBOPLATIN
     Dosage: 410 MG, WEEKLY
     Route: 042
     Dates: start: 20230711
  8. OMEPRAZOLE [Concomitant]
     Active Substance: OMEPRAZOLE
     Indication: Prophylaxis
     Dosage: 20 MILLIGRAM, BID
     Route: 048
     Dates: start: 20230531
  9. VALSARTAN [Concomitant]
     Active Substance: VALSARTAN
     Indication: Hypertension
     Dosage: UNK, 1X/DAY
     Route: 048
     Dates: start: 2020
  10. PHOSPHOLIPID [Concomitant]
     Active Substance: PHOSPHOLIPID
     Indication: Prophylaxis
     Dosage: UNK, 3X/DAY
     Route: 048
  11. LEUCOGEN [Concomitant]
     Active Substance: LEUCOGEN
     Dosage: 20 MILLIGRAM, TID
     Route: 048
  12. TUCIDINOSTAT [Concomitant]
     Active Substance: TUCIDINOSTAT
     Dosage: 30 MILLIGRAM, 2/WEEK
     Route: 048
  13. SODIUM BICARBONATE [Concomitant]
     Active Substance: SODIUM BICARBONATE
     Indication: Blood alkalinisation therapy
     Dosage: 250 MILLIGRAM, QD
     Route: 042
     Dates: start: 20230531, end: 20230603
  14. MAGNESIUM ISOGLYCYRRHIZINATE [Concomitant]
     Active Substance: MAGNESIUM ISOGLYCYRRHIZINATE
     Indication: Prophylaxis

REACTIONS (5)
  - Pneumonia [Recovered/Resolved]
  - Myelosuppression [Unknown]
  - Hypokalaemia [Unknown]
  - Aspartate aminotransferase increased [Unknown]
  - Anaemia [Unknown]

NARRATIVE: CASE EVENT DATE: 20230701
